FAERS Safety Report 4493878-7 (Version None)
Quarter: 2004Q4

REPORT INFORMATION
  Report Type: 
  Country: None (occurrence: None)
  Receive Date: 20041102
  Receipt Date: 20041018
  Transmission Date: 20050328
  Serious: No
  Sender: FDA-Public Use
  Company Number: 2004GB02508

PATIENT
  Age: 78 Year
  Sex: Female
  Weight: 48.5 kg

DRUGS (4)
  1. SEROQUEL [Suspect]
     Indication: PSYCHOTIC DISORDER
     Dosage: 50-200 MG PER DAY
     Dates: start: 20040319, end: 20040908
  2. MADOPAR [Suspect]
     Dosage: 812.5 UG DAILY PO
     Route: 048
  3. THYROXINE [Concomitant]
  4. LACTULOSE [Concomitant]

REACTIONS (4)
  - BLOOD PRESSURE FLUCTUATION [None]
  - BRADYCARDIA [None]
  - DEPRESSED LEVEL OF CONSCIOUSNESS [None]
  - DRUG INTERACTION [None]
